FAERS Safety Report 22141677 (Version 3)
Quarter: 2024Q2

REPORT INFORMATION
  Report Type: Spontaneous
  Country: US (occurrence: US)
  Receive Date: 20230327
  Receipt Date: 20240424
  Transmission Date: 20240716
  Serious: No
  Sender: FDA-Public Use
  Company Number: US-PFIZER INC-202300122052

PATIENT
  Age: 60 Year
  Sex: Female
  Weight: 78.47 kg

DRUGS (2)
  1. SOLU-CORTEF [Suspect]
     Active Substance: HYDROCORTISONE SODIUM SUCCINATE
     Indication: Secondary adrenocortical insufficiency
     Dosage: UNK
  2. SOLU-CORTEF [Suspect]
     Active Substance: HYDROCORTISONE SODIUM SUCCINATE
     Dosage: UNK

REACTIONS (4)
  - Therapeutic response unexpected [Unknown]
  - Depression [Unknown]
  - Anxiety [Unknown]
  - Stress [Unknown]
